FAERS Safety Report 4988518-4 (Version None)
Quarter: 2006Q2

REPORT INFORMATION
  Report Type: 
  Country: None (occurrence: None)
  Receive Date: 20060426
  Receipt Date: 20060407
  Transmission Date: 20061013
  Serious: Yes (Other)
  Sender: FDA-Public Use
  Company Number: ENTC2006-0108

PATIENT
  Age: 78 Year
  Sex: Female

DRUGS (5)
  1. STALEVO 100 [Suspect]
     Indication: PARKINSON'S DISEASE
     Dosage: SEE IMAGE
     Route: 048
  2. SEROQUEL [Concomitant]
  3. MOTILIUM [Concomitant]
  4. RANITIDINE [Concomitant]
  5. ALENDRONATE SODIUM [Concomitant]

REACTIONS (4)
  - AGITATION [None]
  - DYSKINESIA [None]
  - INCREASED UPPER AIRWAY SECRETION [None]
  - NIGHTMARE [None]
